FAERS Safety Report 4968748-8 (Version None)
Quarter: 2006Q2

REPORT INFORMATION
  Report Type: 
  Country: None (occurrence: None)
  Receive Date: 20060411
  Receipt Date: 20060330
  Transmission Date: 20061013
  Serious: Yes (Hospitalization)
  Sender: FDA-Public Use
  Company Number: PT-JNJFOC-20031105180

PATIENT
  Sex: Female
  Weight: 60 kg

DRUGS (6)
  1. REMICADE [Suspect]
     Dosage: DOSE STRENGTH 5MG/KG
     Route: 042
     Dates: start: 20030702, end: 20031008
  2. REMICADE [Suspect]
     Dosage: DOSE STRENGTH 5MG/KG
     Route: 042
     Dates: start: 20030702, end: 20031008
  3. REMICADE [Suspect]
     Indication: ANKYLOSING SPONDYLITIS
     Dosage: DOSE STRENGTH 5MG/KG
     Route: 042
     Dates: start: 20030702, end: 20031008
  4. REMICADE [Suspect]
     Indication: CROHN'S DISEASE
     Dosage: DOSE STRENGTH 5MG/KG
     Route: 042
     Dates: start: 20030702, end: 20031008
  5. PREDNISOLONE [Concomitant]
  6. 5 ASA [Concomitant]

REACTIONS (2)
  - MENINGITIS TUBERCULOUS [None]
  - PULMONARY TUBERCULOSIS [None]
